FAERS Safety Report 24189205 (Version 1)
Quarter: 2024Q3

REPORT INFORMATION
  Report Type: Spontaneous
  Country: US (occurrence: None)
  Receive Date: 20240807
  Receipt Date: 20240807
  Transmission Date: 20241016
  Serious: Yes (Hospitalization)
  Sender: Public
  Company Number: None

PATIENT
  Sex: Female

DRUGS (2)
  1. ICATIBANT ACETATE [Suspect]
     Active Substance: ICATIBANT ACETATE
     Indication: Complement deficiency disease
     Dosage: FREQUENCY : AS NEEDED;?
     Route: 058
     Dates: start: 202406
  2. RUCONEST [Concomitant]

REACTIONS (6)
  - Swelling face [None]
  - Pharyngeal swelling [None]
  - Peripheral swelling [None]
  - Abdominal distension [None]
  - Complement deficiency disease [None]
  - Condition aggravated [None]

NARRATIVE: CASE EVENT DATE: 20240804
